FAERS Safety Report 18981912 (Version 1)
Quarter: 2021Q1

REPORT INFORMATION
  Report Type: Spontaneous
  Country: CH (occurrence: CH)
  Receive Date: 20210308
  Receipt Date: 20210308
  Transmission Date: 20210420
  Serious: Yes (Hospitalization)
  Sender: FDA-Public Use
  Company Number: CH-ALLERGAN-2109229US

PATIENT
  Sex: Female

DRUGS (9)
  1. HALDOL [Suspect]
     Active Substance: HALOPERIDOL
     Indication: AGITATION
     Dosage: 1 MG, BID
     Route: 048
     Dates: start: 202006, end: 20210131
  2. SERTRALINE [Suspect]
     Active Substance: SERTRALINE HYDROCHLORIDE
     Indication: DEPRESSION
     Dosage: 50 MG, QD
     Route: 048
     Dates: start: 202006, end: 20210129
  3. TEMESTA EXPIDET [Concomitant]
     Active Substance: LORAZEPAM
  4. MEMANTINE HCL ? BP [Suspect]
     Active Substance: MEMANTINE
     Indication: DEMENTIA
     Dosage: 15 MG, QD
     Route: 048
     Dates: start: 2020, end: 20210129
  5. NEXIUM MUPS [Concomitant]
     Active Substance: ESOMEPRAZOLE
  6. RIVASTIGMINE. [Concomitant]
     Active Substance: RIVASTIGMINE
     Dosage: UNK
     Dates: start: 2020
  7. DAFALGAN [Suspect]
     Active Substance: ACETAMINOPHEN
     Indication: ARTHRALGIA
     Dosage: 3 G, QD
     Route: 048
     Dates: start: 202007, end: 20210201
  8. MYCOSTATINE [Concomitant]
     Active Substance: NYSTATIN
     Dosage: UNK
     Dates: start: 20210129, end: 20210203
  9. DAFALGAN [Suspect]
     Active Substance: ACETAMINOPHEN
     Indication: PAIN

REACTIONS (1)
  - Liver function test abnormal [Recovering/Resolving]

NARRATIVE: CASE EVENT DATE: 202101
